FAERS Safety Report 16076436 (Version 1)
Quarter: 2019Q1

REPORT INFORMATION
  Report Type: Spontaneous
  Country: US (occurrence: US)
  Receive Date: 20190315
  Receipt Date: 20190315
  Transmission Date: 20190418
  Serious: No
  Sender: FDA-Public Use
  Company Number: US-PFIZER INC-2019105617

PATIENT
  Age: 60 Year
  Sex: Female

DRUGS (1)
  1. ALDACTONE [Suspect]
     Active Substance: SPIRONOLACTONE
     Indication: ALOPECIA
     Dosage: 200 MG, UNK

REACTIONS (1)
  - Drug effective for unapproved indication [Unknown]
